FAERS Safety Report 12681386 (Version 1)
Quarter: 2016Q3

REPORT INFORMATION
  Report Type: Spontaneous
  Country: DE (occurrence: DE)
  Receive Date: 20160824
  Receipt Date: 20160824
  Transmission Date: 20161109
  Serious: Yes (Death, Other)
  Sender: FDA-Public Use
  Company Number: DE-JNJFOC-20160529636

PATIENT
  Age: 78 Year
  Sex: Female
  Weight: 70 kg

DRUGS (9)
  1. XARELTO [Suspect]
     Active Substance: RIVAROXABAN
     Indication: CEREBROVASCULAR ACCIDENT PROPHYLAXIS
     Route: 048
  2. XARELTO [Suspect]
     Active Substance: RIVAROXABAN
     Indication: ATRIAL FIBRILLATION
     Route: 048
  3. ACETYLSALICYLIC ACID [Concomitant]
     Active Substance: ASPIRIN
     Route: 065
  4. APIXABAN [Concomitant]
     Active Substance: APIXABAN
     Route: 065
  5. FONDAPARINUX [Concomitant]
     Active Substance: FONDAPARINUX
     Route: 065
  6. TOREM [Concomitant]
     Active Substance: TORSEMIDE
     Route: 065
  7. COUMADIN [Concomitant]
     Active Substance: WARFARIN SODIUM
     Route: 065
  8. DABIGATRAN [Concomitant]
     Active Substance: DABIGATRAN
     Route: 065
  9. HEPARIN [Concomitant]
     Active Substance: HEPARIN SODIUM
     Route: 065

REACTIONS (5)
  - Anaemia [Fatal]
  - Haemoglobin decreased [Unknown]
  - Cardiac failure [Fatal]
  - Haemorrhage [Fatal]
  - Haemothorax [Unknown]

NARRATIVE: CASE EVENT DATE: 20160417
